FAERS Safety Report 6271339-2 (Version None)
Quarter: 2009Q3

REPORT INFORMATION
  Report Type: 
  Country: None (occurrence: None)
  Receive Date: 20090717
  Receipt Date: 20090714
  Transmission Date: 20100115
  Serious: Yes (Death)
  Sender: FDA-Public Use
  Company Number: JP-JNJFOC-20090700965

PATIENT
  Sex: Female
  Weight: 48 kg

DRUGS (8)
  1. DUROTEP MT PATCH [Suspect]
     Route: 062
  2. DUROTEP MT PATCH [Suspect]
     Route: 062
  3. DUROTEP MT PATCH [Suspect]
     Route: 062
  4. DUROTEP MT PATCH [Suspect]
     Indication: CANCER PAIN
     Route: 062
  5. ANPEC (MORPHINE HYDROCHLORIDE) [Concomitant]
     Route: 054
  6. ANPEC (MORPHINE HYDROCHLORIDE) [Concomitant]
     Route: 054
  7. ANPEC (MORPHINE HYDROCHLORIDE) [Concomitant]
     Indication: CANCER PAIN
     Route: 054
  8. OXINORM (OXYCODONE HYDROCHLORIDE) [Concomitant]
     Indication: CANCER PAIN
     Route: 048

REACTIONS (1)
  - RESPIRATORY FAILURE [None]
